FAERS Safety Report 8199115-4 (Version None)
Quarter: 2012Q1

REPORT INFORMATION
  Report Type: 
  Country: None (occurrence: None)
  Receive Date: 20120309
  Receipt Date: 20120229
  Transmission Date: 20120608
  Serious: Yes (Other)
  Sender: FDA-Public Use
  Company Number: US-ROCHE-1044465

PATIENT
  Sex: Female

DRUGS (6)
  1. BONIVA [Suspect]
     Indication: OSTEOPOROSIS
     Route: 048
     Dates: start: 20080101
  2. VALIUM [Concomitant]
  3. AMBIEN [Concomitant]
  4. ZYRTEC [Concomitant]
  5. ZOLOFT [Concomitant]
  6. CALCIUM [Concomitant]

REACTIONS (8)
  - FEMUR FRACTURE [None]
  - COLITIS [None]
  - SINUSITIS [None]
  - BRONCHITIS [None]
  - CELLULITIS [None]
  - LIPIDS INCREASED [None]
  - RHINITIS [None]
  - INFLAMMATORY BOWEL DISEASE [None]
